FAERS Safety Report 24924465 (Version 1)
Quarter: 2025Q1

REPORT INFORMATION
  Report Type: Report from Study
  Country: CO (occurrence: CO)
  Receive Date: 20250204
  Receipt Date: 20250204
  Transmission Date: 20250409
  Serious: Yes (Hospitalization)
  Sender: JOHNSON AND JOHNSON
  Company Number: CO-JNJFOC-20231041976

PATIENT
  Age: 64 Year
  Sex: Female
  Weight: 52 kg

DRUGS (6)
  1. INVEGA SUSTENNA [Suspect]
     Active Substance: PALIPERIDONE PALMITATE
     Indication: Schizoaffective disorder
     Dosage: LAST APPLICATION DATE WAS ON 17- DEC-2024.
     Route: 030
     Dates: start: 20230426
  2. INVEGA SUSTENNA [Suspect]
     Active Substance: PALIPERIDONE PALMITATE
  3. INVEGA SUSTENNA [Suspect]
     Active Substance: PALIPERIDONE PALMITATE
  4. VALPROATE [Concomitant]
     Active Substance: VALPROIC ACID
  5. OLANZAPINE [Concomitant]
     Active Substance: OLANZAPINE
  6. CALCIUM CARBONATE\CHOLECALCIFEROL [Concomitant]
     Active Substance: CALCIUM CARBONATE\CHOLECALCIFEROL

REACTIONS (8)
  - Abnormal behaviour [Recovered/Resolved]
  - Anaemia [Not Recovered/Not Resolved]
  - Treatment noncompliance [Unknown]
  - Tremor [Not Recovered/Not Resolved]
  - Tremor [Not Recovered/Not Resolved]
  - Living in residential institution [Not Recovered/Not Resolved]
  - Dental caries [Recovered/Resolved]
  - Persecutory delusion [Unknown]

NARRATIVE: CASE EVENT DATE: 20230501
